FAERS Safety Report 9128531 (Version 1)
Quarter: 2013Q1

REPORT INFORMATION
  Report Type: Spontaneous
  Country: US (occurrence: US)
  Receive Date: 20130228
  Receipt Date: 20130228
  Transmission Date: 20140127
  Serious: No
  Sender: FDA-Public Use
  Company Number: US-GLAXOSMITHKLINE-A1003069A

PATIENT
  Age: 35 Year
  Sex: Female

DRUGS (4)
  1. IMITREX [Suspect]
     Indication: MIGRAINE
     Dosage: 6MG AS REQUIRED
     Route: 058
     Dates: start: 1985, end: 1988
  2. IMITREX [Suspect]
     Indication: MIGRAINE
     Dosage: 100MG AS REQUIRED
     Route: 048
  3. SUMATRIPTAN [Suspect]
     Indication: MIGRAINE
     Route: 065
  4. NO CONCURRENT MEDICATION [Concomitant]

REACTIONS (8)
  - Palpitations [Unknown]
  - Malaise [Unknown]
  - Asthenia [Unknown]
  - Hypersensitivity [Unknown]
  - Nausea [Unknown]
  - Headache [Unknown]
  - Heart rate increased [Unknown]
  - Drug ineffective [Not Recovered/Not Resolved]
